FAERS Safety Report 22955010 (Version 3)
Quarter: 2024Q1

REPORT INFORMATION
  Report Type: Spontaneous
  Country: US (occurrence: US)
  Receive Date: 20230918
  Receipt Date: 20240201
  Transmission Date: 20240409
  Serious: No
  Sender: FDA-Public Use
  Company Number: US-BRISTOL-MYERS SQUIBB COMPANY-2023-131931

PATIENT
  Age: 71 Year
  Sex: Female
  Weight: 85.73 kg

DRUGS (1)
  1. POMALYST [Suspect]
     Active Substance: POMALIDOMIDE
     Indication: Plasma cell myeloma
     Route: 048
     Dates: start: 20220101

REACTIONS (5)
  - Ageusia [Unknown]
  - Peripheral swelling [Unknown]
  - Nasopharyngitis [Unknown]
  - Peripheral coldness [Unknown]
  - Bronchitis [Unknown]
